FAERS Safety Report 6601320-2 (Version None)
Quarter: 2010Q1

REPORT INFORMATION
  Report Type: 
  Country: None (occurrence: None)
  Receive Date: 20100225
  Receipt Date: 20100216
  Transmission Date: 20100710
  Serious: Yes (Other)
  Sender: FDA-Public Use
  Company Number: US-ASTRAZENECA-2010SE06773

PATIENT
  Sex: Female

DRUGS (1)
  1. FASLODEX [Suspect]
     Indication: BREAST CANCER
     Dosage: 250 MG/5 ML
     Route: 030

REACTIONS (3)
  - IMPAIRED WORK ABILITY [None]
  - METASTASES TO LYMPH NODES [None]
  - NEOPLASM PROGRESSION [None]
